FAERS Safety Report 17923254 (Version 1)
Quarter: 2020Q2

REPORT INFORMATION
  Report Type: Spontaneous
  Country: DE (occurrence: DE)
  Receive Date: 20200622
  Receipt Date: 20200622
  Transmission Date: 20200714
  Serious: Yes (Hospitalization)
  Sender: FDA-Public Use
  Company Number: DE-TEVA-2020-DE-1789112

PATIENT
  Age: 75 Year
  Sex: Male

DRUGS (18)
  1. LEVETIRACETAM. [Suspect]
     Active Substance: LEVETIRACETAM
     Dosage: 250 MG, 2-1-2-0
  2. CARBIDOPA/LEVODOPA [Suspect]
     Active Substance: CARBIDOPA\LEVODOPA
     Dosage: 1 DOSAGE FORMS DAILY; 25|250 MG, 0-0-1-0
  3. METOPROLOL. [Concomitant]
     Active Substance: METOPROLOL
     Dosage: 95 MILLIGRAM DAILY; 0-0-1-0
  4. AMLODIPIN [Concomitant]
     Active Substance: AMLODIPINE BESYLATE
     Dosage: 10 MILLIGRAM DAILY; 5 MG, 1-0-1-0
  5. SITAGLIPTIN [Concomitant]
     Active Substance: SITAGLIPTIN
     Dosage: 50 MILLIGRAM DAILY; 1-0-0-0
  6. MELPERON [Suspect]
     Active Substance: MELPERONE
     Dosage: 2 DOSAGE FORMS DAILY; 25 MG, 0-0-2-0
  7. ACETYLSALICYLSAURE [Concomitant]
     Active Substance: ASPIRIN
     Dosage: 100 MILLIGRAM DAILY; 0-1-0-0
  8. HYDROMORPHONE [Suspect]
     Active Substance: HYDROMORPHONE
     Dosage: 4 MILLIGRAM DAILY; 2 MG, 1-0-1-0
  9. MIRTAZAPINE. [Suspect]
     Active Substance: MIRTAZAPINE
     Dosage: 45 MILLIGRAM DAILY; 45 MG, 0-0-1-0
  10. TORASEMID [Concomitant]
     Active Substance: TORSEMIDE
     Dosage: 2 DOSAGE FORMS DAILY; 10 MG, 2-0-0-0
  11. METAMIZOL [Concomitant]
     Active Substance: METAMIZOLE SODIUM
     Dosage: 2000 MILLIGRAM DAILY; 500 MG, 1-1-1-1
  12. METFORMIN [Concomitant]
     Active Substance: METFORMIN HYDROCHLORIDE
     Dosage: 1000 MILLIGRAM DAILY; 500 MG, 1-1-0-0
  13. DULOXETIN [Suspect]
     Active Substance: DULOXETINE
     Dosage: 60 MILLIGRAM DAILY;  1-0-0-0
  14. SIMVASTATIN. [Concomitant]
     Active Substance: SIMVASTATIN
     Dosage: .5 DOSAGE FORMS DAILY; 40 MG, 0-0-0.5-0
  15. INSULIN GLARGIN [Concomitant]
     Active Substance: INSULIN GLARGINE
     Dosage: 34 DOSAGE FORMS DAILY; 450 IE, 34-0-0-0
  16. COLECALCIFEROL (VITAMIN D) [Concomitant]
     Dosage: 1 DOSAGE FORMS DAILY; 1000 IE, 0-1-0-0
  17. RAMIPRIL. [Concomitant]
     Active Substance: RAMIPRIL
     Dosage: 10 MILLIGRAM DAILY; 5 MG, 1-0-1-0
  18. ALLOPURINOL. [Concomitant]
     Active Substance: ALLOPURINOL
     Dosage: .5 DOSAGE FORMS DAILY; 300 MG, 0.5-0-0-0

REACTIONS (5)
  - Fall [Unknown]
  - Musculoskeletal pain [Unknown]
  - Fracture [Unknown]
  - Balance disorder [Unknown]
  - Headache [Unknown]
